FAERS Safety Report 10076695 (Version 4)
Quarter: 2014Q2

REPORT INFORMATION
  Report Type: Report from Study
  Country: GB (occurrence: GB)
  Receive Date: 20140414
  Receipt Date: 20140619
  Transmission Date: 20141212
  Serious: Yes (Hospitalization)
  Sender: FDA-Public Use
  Company Number: GB-GLAXOSMITHKLINE-B0985247A

PATIENT
  Age: 85 Year
  Sex: Male
  Weight: 79.2 kg

DRUGS (20)
  1. OFATUMUMAB [Suspect]
     Indication: CHRONIC LYMPHOCYTIC LEUKAEMIA
     Route: 042
     Dates: start: 20140324
  2. BENDAMUSTINE [Suspect]
     Indication: CHRONIC LYMPHOCYTIC LEUKAEMIA
     Route: 042
     Dates: start: 20140325
  3. PREDNISOLONE [Suspect]
     Indication: CHRONIC LYMPHOCYTIC LEUKAEMIA
     Route: 042
     Dates: start: 20140324
  4. PARACETAMOL [Concomitant]
     Indication: CHRONIC LYMPHOCYTIC LEUKAEMIA
     Route: 048
     Dates: start: 20140324
  5. CHLORPHENIRAMINE [Concomitant]
     Indication: CHRONIC LYMPHOCYTIC LEUKAEMIA
     Route: 042
     Dates: start: 20140324
  6. ALLOPURINOL [Concomitant]
     Indication: CHRONIC LYMPHOCYTIC LEUKAEMIA
     Route: 048
     Dates: start: 20140425
  7. METOCLOPRAMIDE [Concomitant]
     Indication: CHRONIC LYMPHOCYTIC LEUKAEMIA
     Route: 048
     Dates: start: 20140425
  8. ACICLOVIR [Concomitant]
     Indication: CHRONIC LYMPHOCYTIC LEUKAEMIA
     Route: 048
     Dates: start: 20140324
  9. GRANULOCYTE COLONY-STIMULATING FACTOR NOS [Concomitant]
  10. LEUPRORELIN [Concomitant]
     Indication: PROSTATE CANCER
     Dosage: 11.25MG SEE DOSAGE TEXT
     Route: 058
     Dates: start: 20121205
  11. BISOPROLOL [Concomitant]
     Indication: ATRIAL FIBRILLATION
     Dosage: 2.5MG PER DAY
     Route: 048
     Dates: start: 20110627
  12. TAMSULOSIN [Concomitant]
     Indication: BLADDER OBSTRUCTION
     Dosage: 400MG PER DAY
     Route: 048
     Dates: start: 20090807
  13. ATORVASTATIN [Concomitant]
     Indication: MYOCARDIAL ISCHAEMIA
     Dosage: 40MG PER DAY
     Route: 048
     Dates: start: 20070627
  14. OMEPRAZOLE [Concomitant]
     Indication: DYSPEPSIA
     Dosage: 20MG TWICE PER DAY
     Route: 048
     Dates: start: 20090909
  15. LINAGLIPTIN [Concomitant]
     Indication: DIABETES MELLITUS
     Dosage: 5MG PER DAY
     Route: 048
     Dates: start: 20130830
  16. FUROSEMIDE [Concomitant]
     Indication: HYPERTENSION
     Dosage: 80MG PER DAY
     Route: 048
     Dates: start: 20110627
  17. GABAPENTIN [Concomitant]
     Indication: PERIPHERAL SENSORY NEUROPATHY
     Dosage: 300MG PER DAY
     Route: 048
     Dates: start: 20120807
  18. COLECALCIFEROL [Concomitant]
     Indication: HYPOVITAMINOSIS
     Dosage: 800MG TWICE PER DAY
     Route: 048
     Dates: start: 20120807
  19. FERROUS FUMARATE [Concomitant]
     Indication: IRON DEFICIENCY
     Dosage: 210MG TWICE PER DAY
     Route: 048
     Dates: start: 20131220, end: 20140407
  20. NITROLINGUAL [Concomitant]
     Indication: ANGINA PECTORIS
     Dosage: 400MG AS REQUIRED
     Route: 048
     Dates: start: 20130830

REACTIONS (1)
  - Febrile neutropenia [Recovered/Resolved]
